FAERS Safety Report 12598592 (Version 1)
Quarter: 2016Q3

REPORT INFORMATION
  Report Type: Spontaneous
  Country: KE (occurrence: KE)
  Receive Date: 20160727
  Receipt Date: 20160727
  Transmission Date: 20161109
  Serious: Yes (Other)
  Sender: FDA-Public Use
  Company Number: KE-GLAXOSMITHKLINE-KE2016GSK106055

PATIENT
  Age: 39 Year
  Sex: Female

DRUGS (1)
  1. VENTOLIN [Suspect]
     Active Substance: ALBUTEROL SULFATE
     Indication: ASTHMA
     Route: 055

REACTIONS (3)
  - Product quality issue [Unknown]
  - Dysgeusia [Recovered/Resolved]
  - Dependence [Recovered/Resolved]

NARRATIVE: CASE EVENT DATE: 2014
